FAERS Safety Report 7727300 (Version 3)
Quarter: 2012Q4

REPORT INFORMATION
  Report Type: 
  Country: JP (occurrence: US)
  Receive Date: 20101222
  Receipt Date: 20120924
  Transmission Date: 20130627
  Serious: Yes (Hospitalization, Other)
  Sender: FDA-Public Use
  Company Number: US-JNJFOC-20100807795

PATIENT
  Age: 54 None

DRUGS (1)
  1. LEVAQUIN [Suspect]
     Indication: OSTEOMYELITIS
     Route: 048
     Dates: start: 20080101, end: 20080930

REACTIONS (2)
  - Tendon rupture [Unknown]
  - Tendon rupture [Unknown]
